FAERS Safety Report 5773930-6 (Version None)
Quarter: 2008Q2

REPORT INFORMATION
  Report Type: 
  Country: None (occurrence: None)
  Receive Date: 20080616
  Receipt Date: 20080606
  Transmission Date: 20081010
  Serious: Yes (Other)
  Sender: FDA-Public Use
  Company Number: B0524936A

PATIENT
  Age: 60 Year
  Sex: Male

DRUGS (1)
  1. ZEFFIX [Suspect]
     Route: 065
     Dates: start: 20071001

REACTIONS (2)
  - BLOOD BILIRUBIN INCREASED [None]
  - HEPATIC NEOPLASM [None]
